FAERS Safety Report 5398898-6 (Version None)
Quarter: 2007Q3

REPORT INFORMATION
  Report Type: 
  Country: None (occurrence: None)
  Receive Date: 20070727
  Receipt Date: 20070720
  Transmission Date: 20080115
  Serious: Yes (Other)
  Sender: FDA-Public Use
  Company Number: PHEH2007US10192

PATIENT
  Sex: Male

DRUGS (2)
  1. TEGRETOL-XR [Suspect]
     Dosage: 100 MG, BID
  2. KEPPRA [Suspect]

REACTIONS (4)
  - AGGRESSION [None]
  - CONVULSION [None]
  - NAUSEA [None]
  - TIC [None]
